FAERS Safety Report 6260499-5 (Version None)
Quarter: 2009Q3

REPORT INFORMATION
  Report Type: 
  Country: None (occurrence: None)
  Receive Date: 20090706
  Receipt Date: 20090623
  Transmission Date: 20100115
  Serious: Yes (Other)
  Sender: FDA-Public Use
  Company Number: 2009AP002557

PATIENT
  Sex: Female

DRUGS (1)
  1. CARBAMAZEPINE [Suspect]
     Dosage: UNKNOWN

REACTIONS (6)
  - ALTERED STATE OF CONSCIOUSNESS [None]
  - ATAXIA [None]
  - NAUSEA [None]
  - OCULOGYRIC CRISIS [None]
  - VENTRICULOPERITONEAL SHUNT MALFUNCTION [None]
  - VOMITING [None]
